FAERS Safety Report 6262234-3 (Version None)
Quarter: 2009Q3

REPORT INFORMATION
  Report Type: 
  Country: None (occurrence: None)
  Receive Date: 20090708
  Receipt Date: 20090708
  Transmission Date: 20100115
  Serious: Yes (Disabling)
  Sender: FDA-Public Use
  Company Number: None

PATIENT
  Age: 57 Year
  Sex: Male
  Weight: 83.9154 kg

DRUGS (2)
  1. ZICAM - ORAL MIST. [Suspect]
     Indication: NASOPHARYNGITIS
     Dosage: AS DIRECTED
     Dates: start: 20081107, end: 20081110
  2. ZICAM - ORAL MIST. [Suspect]
     Indication: PROPHYLAXIS
     Dosage: AS DIRECTED
     Dates: start: 20081107, end: 20081110

REACTIONS (2)
  - AGEUSIA [None]
  - ANOSMIA [None]
